FAERS Safety Report 23080734 (Version 4)
Quarter: 2024Q2

REPORT INFORMATION
  Report Type: Report from Study
  Country: JP (occurrence: JP)
  Receive Date: 20231018
  Receipt Date: 20240404
  Transmission Date: 20240716
  Serious: Yes (Hospitalization)
  Sender: FDA-Public Use
  Company Number: JP-ABBVIE-5452649

PATIENT
  Age: 47 Year
  Sex: Female
  Weight: 49 kg

DRUGS (18)
  1. CARBIDOPA\LEVODOPA [Suspect]
     Active Substance: CARBIDOPA\LEVODOPA
     Indication: Parkinson^s disease
     Dosage: MD: 4.5 ML, CD: 1.2 ML/HR ? 17 HRS, ED: 2 ML/UNIT?MD: 4.5 ML, CD: 1.2 ML/HR ? 17 HRS, ED: 2 ML/UNIT
     Route: 050
     Dates: start: 20190908, end: 20190910
  2. CARBIDOPA\LEVODOPA [Suspect]
     Active Substance: CARBIDOPA\LEVODOPA
     Dosage: MD: 4.5 ML, CD: 1.2 ML/HR ?- 17 HRS, ED: 2 ML/UNIT?MD: 4.5 ML, CD: 1.2 ML/HR ?- 17 HRS, ED: 2 ML/...
     Route: 050
     Dates: start: 20190831, end: 20190907
  3. CARBIDOPA\LEVODOPA [Suspect]
     Active Substance: CARBIDOPA\LEVODOPA
     Dosage: MD: 4.5 ML, CD: 1.2 ML/HR ?- 17 HRS, ED: 2 ML/UNIT.?MD: 4.5 ML, CD: 1.2 ML/HR ?- 17 HRS, ED: 2 ML...
     Route: 050
     Dates: start: 20170130, end: 20190830
  4. CARBIDOPA\LEVODOPA [Suspect]
     Active Substance: CARBIDOPA\LEVODOPA
     Dosage: MD: 4.0 ML, CD: 1.2 ML/HR ? 17 HRS, ED: 2.5 ML/UNIT?MD: 4.0 ML, CD: 1.2 ML/HR ? 17 HRS, ED: 2.5 M...
     Route: 050
     Dates: start: 20210305, end: 20210309
  5. CARBIDOPA\LEVODOPA [Suspect]
     Active Substance: CARBIDOPA\LEVODOPA
     Dosage: MD: 4.0 ML, CD: 1.2 ML/HR ? 17 HRS, ED: 2 ML/UNIT?MD: 4.0 ML, CD: 1.2 ML/HR ? 17 HRS, ED: 2 ML/UNIT
     Route: 050
     Dates: start: 20190911, end: 20210212
  6. CARBIDOPA\LEVODOPA [Suspect]
     Active Substance: CARBIDOPA\LEVODOPA
     Dosage: MD: 4.0 ML, CD: 1.2 ML/HR ? 17 HRS, ED: 2.2 ML/UNIT?MD: 4.0 ML, CD: 1.2 ML/HR ? 17 HRS, ED: 2.2 M...
     Route: 050
     Dates: start: 20210212, end: 20210305
  7. CARBIDOPA\LEVODOPA [Suspect]
     Active Substance: CARBIDOPA\LEVODOPA
     Dosage: MD: 4.0 ML, CD: 1.2 ML/HR ? 17 HRS, ED: 3.0 ML/UNIT
     Route: 050
     Dates: start: 20210309
  8. MAGNESIUM OXIDE [Concomitant]
     Active Substance: MAGNESIUM OXIDE
     Indication: Constipation
     Dosage: 1500 MILLIGRAM
     Route: 048
     Dates: start: 20181211, end: 20190205
  9. MAGNESIUM OXIDE [Concomitant]
     Active Substance: MAGNESIUM OXIDE
     Indication: Constipation
     Route: 048
  10. MAGNESIUM OXIDE [Concomitant]
     Active Substance: MAGNESIUM OXIDE
     Indication: Constipation
     Dosage: 500 MILLIGRAM
     Route: 048
     Dates: start: 20180220, end: 20181113
  11. MAGNESIUM OXIDE [Concomitant]
     Active Substance: MAGNESIUM OXIDE
     Indication: Constipation
     Dosage: 500 MILLIGRAM
     Route: 048
     Dates: start: 20180220, end: 20181113
  12. MAGNESIUM OXIDE [Concomitant]
     Active Substance: MAGNESIUM OXIDE
     Indication: Constipation
     Dosage: 1000 MILLIGRAM
     Route: 048
     Dates: start: 20181113, end: 20181211
  13. MAGNESIUM OXIDE [Concomitant]
     Active Substance: MAGNESIUM OXIDE
     Indication: Constipation
     Dosage: 1000 MILLIGRAM
     Route: 048
     Dates: start: 20190205
  14. MAGNESIUM OXIDE [Concomitant]
     Active Substance: MAGNESIUM OXIDE
     Indication: Constipation
     Route: 048
     Dates: start: 20181113, end: 20181211
  15. MAGNESIUM OXIDE [Concomitant]
     Active Substance: MAGNESIUM OXIDE
     Indication: Constipation
     Dosage: 1000 MILLIGRAM
     Route: 048
     Dates: start: 20181211, end: 20190205
  16. ROPINIROLE HYDROCHLORIDE [Concomitant]
     Active Substance: ROPINIROLE HYDROCHLORIDE
     Indication: Parkinson^s disease
     Route: 048
     Dates: end: 20170912
  17. ISTRADEFYLLINE [Concomitant]
     Active Substance: ISTRADEFYLLINE
     Indication: Prophylaxis
     Route: 048
     Dates: start: 20170417
  18. FLUNITRAZEPAM [Concomitant]
     Active Substance: FLUNITRAZEPAM
     Indication: Insomnia
     Route: 048

REACTIONS (20)
  - Bezoar [Recovering/Resolving]
  - On and off phenomenon [Recovered/Resolved]
  - Sedation [Unknown]
  - On and off phenomenon [Unknown]
  - Device issue [Unknown]
  - Mobility decreased [Unknown]
  - On and off phenomenon [Recovered/Resolved]
  - Device connection issue [Unknown]
  - Device occlusion [Recovered/Resolved]
  - Device dislocation [Recovered/Resolved]
  - Intestinal obstruction [Recovering/Resolving]
  - Intussusception [Unknown]
  - Device kink [Recovered/Resolved]
  - Device occlusion [Recovered/Resolved]
  - Mobility decreased [Unknown]
  - On and off phenomenon [Recovered/Resolved]
  - Muscle rigidity [Unknown]
  - Ovarian disorder [Unknown]
  - Pain in extremity [Unknown]
  - Asthenia [Unknown]

NARRATIVE: CASE EVENT DATE: 20170517
